FAERS Safety Report 5420471-1 (Version None)
Quarter: 2007Q3

REPORT INFORMATION
  Report Type: 
  Country: None (occurrence: None)
  Receive Date: 20070821
  Receipt Date: 20070817
  Transmission Date: 20080115
  Serious: Yes (Death)
  Sender: FDA-Public Use
  Company Number: PHEH2007US00703

PATIENT
  Age: 21 Year
  Sex: Male

DRUGS (2)
  1. CLOZARIL [Suspect]
     Indication: SCHIZOAFFECTIVE DISORDER
     Dosage: 250 MG, QHS
     Route: 048
     Dates: start: 20041001
  2. XANAX [Concomitant]
     Indication: ANXIETY
     Dosage: 0.5 MG, PRN
     Route: 048
     Dates: start: 20051001, end: 20061122

REACTIONS (11)
  - ACCIDENTAL DEATH [None]
  - ALCOHOL POISONING [None]
  - ANTIPSYCHOTIC DRUG LEVEL ABOVE THERAPEUTIC [None]
  - BLOOD ALCOHOL INCREASED [None]
  - BLOOD CAFFEINE [None]
  - CHEST PAIN [None]
  - DRUG SCREEN POSITIVE [None]
  - MYALGIA [None]
  - URINE ALCOHOL TEST POSITIVE [None]
  - URINE COTININE TEST POSITIVE [None]
  - VOMITING [None]
